FAERS Safety Report 6900266-X (Version None)
Quarter: 2010Q3

REPORT INFORMATION
  Report Type: 
  Country: None (occurrence: None)
  Receive Date: 20100803
  Receipt Date: 20100721
  Transmission Date: 20110219
  Serious: Yes (Other)
  Sender: FDA-Public Use
  Company Number: CA-ROCHE-717977

PATIENT
  Age: 76 Year
  Sex: Female

DRUGS (4)
  1. XELODA [Suspect]
     Route: 048
  2. HERCEPTIN [Suspect]
     Dosage: FREQUENCY: WEEKLY
     Route: 042
  3. HERCEPTIN [Suspect]
     Route: 042
  4. TAXOL [Suspect]
     Dosage: FREQUENCY: WEEKLY
     Route: 065

REACTIONS (3)
  - DRUG EFFECT DECREASED [None]
  - EJECTION FRACTION DECREASED [None]
  - THERAPEUTIC RESPONSE DECREASED [None]
